FAERS Safety Report 16857396 (Version 1)
Quarter: 2019Q3

REPORT INFORMATION
  Report Type: Report from Study
  Country: IL (occurrence: IL)
  Receive Date: 20190926
  Receipt Date: 20190926
  Transmission Date: 20191005
  Serious: Yes (Hospitalization)
  Sender: FDA-Public Use
  Company Number: PHHO2016IL011941

PATIENT
  Age: 82 Year
  Sex: Female
  Weight: 85 kg

DRUGS (10)
  1. VALSARTAN. [Suspect]
     Active Substance: VALSARTAN
     Dosage: 160 MG, BID
     Route: 048
     Dates: start: 20161018, end: 20161022
  2. XARELTO [Suspect]
     Active Substance: RIVAROXABAN
     Indication: PROPHYLAXIS
     Dosage: 15 MG, QD
     Route: 065
     Dates: start: 20160519
  3. MONONIT [Concomitant]
     Indication: PULMONARY HYPERTENSION
     Dosage: 50 MG, QD
     Route: 065
     Dates: start: 20160329
  4. FUSID (FUROSEMIDE) [Suspect]
     Active Substance: FUROSEMIDE
     Indication: CARDIAC FAILURE CONGESTIVE
     Dosage: 100 MG, QD
     Route: 048
     Dates: start: 20161010, end: 20161024
  5. CARDILOC [Concomitant]
     Active Substance: BISOPROLOL FUMARATE
     Indication: CARDIAC FAILURE CONGESTIVE
     Dosage: 15 MG, QD
     Route: 065
     Dates: start: 20160212
  6. PLACEBO [Suspect]
     Active Substance: UNSPECIFIED INGREDIENT
     Indication: CARDIAC FAILURE
     Dosage: UNK
     Route: 048
     Dates: start: 20160418, end: 20160518
  7. FUSID (FUROSEMIDE) [Suspect]
     Active Substance: FUROSEMIDE
     Dosage: 60 MG, ONCE/SINGLE
     Route: 042
     Dates: start: 20161024, end: 20161024
  8. VALSARTAN. [Suspect]
     Active Substance: VALSARTAN
     Indication: CARDIAC FAILURE
     Dosage: 160 MG, BID
     Route: 048
     Dates: start: 20160418, end: 20160518
  9. FUSID (FUROSEMIDE) [Suspect]
     Active Substance: FUROSEMIDE
     Dosage: 200 MG, QD
     Route: 041
     Dates: start: 20161025, end: 20161102
  10. PLACEBO [Suspect]
     Active Substance: UNSPECIFIED INGREDIENT
     Dosage: UNK
     Route: 048
     Dates: start: 20161018, end: 20161022

REACTIONS (3)
  - Cardiac failure [Recovered/Resolved]
  - Acute kidney injury [Recovered/Resolved]
  - Iron deficiency anaemia [Recovered/Resolved]

NARRATIVE: CASE EVENT DATE: 20160812
